FAERS Safety Report 13636524 (Version 3)
Quarter: 2017Q3

REPORT INFORMATION
  Report Type: Spontaneous
  Country: US (occurrence: US)
  Receive Date: 20170609
  Receipt Date: 20170727
  Transmission Date: 20171127
  Serious: No
  Sender: FDA-Public Use
  Company Number: US-TAKEDA-2017MPI005088

PATIENT
  Sex: Male

DRUGS (2)
  1. NINLARO [Suspect]
     Active Substance: IXAZOMIB
     Indication: PLASMA CELL MYELOMA
     Dosage: 4 MG, UNK
     Route: 048
     Dates: start: 20170522
  2. REVLIMID [Suspect]
     Active Substance: LENALIDOMIDE
     Indication: PRODUCT USED FOR UNKNOWN INDICATION
     Route: 065

REACTIONS (8)
  - Rash [Unknown]
  - Balance disorder [Unknown]
  - Hypoaesthesia [Unknown]
  - Dyspnoea [Unknown]
  - Lethargy [Unknown]
  - Constipation [Unknown]
  - Diarrhoea [Unknown]
  - Pain in extremity [Unknown]
